FAERS Safety Report 4453084-9 (Version None)
Quarter: 2004Q3

REPORT INFORMATION
  Report Type: 
  Country: None (occurrence: None)
  Receive Date: 20040813
  Receipt Date: 20040518
  Transmission Date: 20050211
  Serious: No
  Sender: FDA-Public Use
  Company Number: S04-USA-03300-01

PATIENT
  Age: 67 Year
  Sex: Female

DRUGS (8)
  1. MEMANTINE HCL [Suspect]
     Indication: DEMENTIA ALZHEIMER'S TYPE
     Dosage: 10 MG QD PO
     Route: 048
     Dates: start: 20030609, end: 20030614
  2. MEMANTINE HCL [Suspect]
     Indication: DEMENTIA ALZHEIMER'S TYPE
     Dosage: 5 MG QD PO
     Route: 048
     Dates: start: 20030602, end: 20030608
  3. ARICEPT [Concomitant]
  4. FOSAFAX [Concomitant]
  5. LIPITOR [Concomitant]
  6. IBUPROPHEN [Concomitant]
  7. VITAMIN E [Concomitant]
  8. MULTI-VITAMIN [Concomitant]

REACTIONS (2)
  - PHOTOPSIA [None]
  - VITREOUS FLOATERS [None]
